FAERS Safety Report 4809042-5 (Version None)
Quarter: 2005Q4

REPORT INFORMATION
  Report Type: 
  Country: None (occurrence: None)
  Receive Date: 20051025
  Receipt Date: 20051018
  Transmission Date: 20060501
  Serious: Yes (Hospitalization, Other)
  Sender: FDA-Public Use
  Company Number: PHBS2005JP15502

PATIENT
  Age: 59 Year
  Sex: Female
  Weight: 37 kg

DRUGS (2)
  1. NEORAL [Suspect]
     Indication: STEM CELL TRANSPLANT
     Route: 048
     Dates: end: 20050927
  2. NEORAL [Suspect]
     Dosage: 20 MG/DAY
     Route: 048
     Dates: start: 20050928, end: 20051005

REACTIONS (9)
  - ALANINE AMINOTRANSFERASE INCREASED [None]
  - ASPARTATE AMINOTRANSFERASE INCREASED [None]
  - BLOOD ALKALINE PHOSPHATASE INCREASED [None]
  - GAMMA-GLUTAMYLTRANSFERASE INCREASED [None]
  - GRAFT VERSUS HOST DISEASE [None]
  - HYPONATRAEMIA [None]
  - INSOMNIA [None]
  - NAUSEA [None]
  - VOMITING [None]
